FAERS Safety Report 6093128-4 (Version None)
Quarter: 2009Q1

REPORT INFORMATION
  Report Type: 
  Country: None (occurrence: None)
  Receive Date: 20090226
  Receipt Date: 20090224
  Transmission Date: 20090719
  Serious: Yes (Death, Hospitalization)
  Sender: FDA-Public Use
  Company Number: SE-JNJFOC-20090205647

PATIENT
  Sex: Female

DRUGS (1)
  1. DURAGESIC-100 [Suspect]
     Indication: CANCER PAIN
     Dosage: 120 UG/HR DURING 7 DAYS INSTEAD OF 12 UG/ HR,
     Route: 062

REACTIONS (3)
  - ACCIDENTAL OVERDOSE [None]
  - LIVER DISORDER [None]
  - RENAL FAILURE [None]
